FAERS Safety Report 10161666 (Version 1)
Quarter: 2014Q2

REPORT INFORMATION
  Report Type: Spontaneous
  Country: US (occurrence: None)
  Receive Date: 20140507
  Receipt Date: 20140507
  Transmission Date: 20141212
  Serious: Yes (Death)
  Sender: FDA-Public Use
  Company Number: 1713747-2014-99961

PATIENT
  Sex: Male

DRUGS (1)
  1. STAY SAFE 2.5% DEX. LM/LC 2L [Suspect]
     Indication: RENAL FAILURE CHRONIC
     Route: 033
     Dates: end: 20140327

REACTIONS (2)
  - Treatment noncompliance [None]
  - Unresponsive to stimuli [None]
